FAERS Safety Report 25899951 (Version 2)
Quarter: 2025Q4

REPORT INFORMATION
  Report Type: Spontaneous
  Country: US (occurrence: US)
  Receive Date: 20251009
  Receipt Date: 20251024
  Transmission Date: 20260117
  Serious: Yes (Other)
  Sender: TEVA
  Company Number: US-TEVA-VS-3377994

PATIENT
  Age: 46 Year
  Sex: Female

DRUGS (3)
  1. METHOTREXATE [Suspect]
     Active Substance: METHOTREXATE
     Indication: Overlap syndrome
     Route: 065
  2. MYCOPHENOLATE MOFETIL [Suspect]
     Active Substance: MYCOPHENOLATE MOFETIL
     Indication: Overlap syndrome
     Route: 065
  3. Immunoglobulins [Concomitant]
     Indication: Overlap syndrome
     Dosage: DOSAGE: 0.5 G/KG
     Route: 042

REACTIONS (2)
  - Drug eruption [Unknown]
  - Neutropenia [Recovered/Resolved]
